FAERS Safety Report 8906467 (Version 1)
Quarter: 2012Q4

REPORT INFORMATION
  Report Type: Spontaneous
  Country: DK (occurrence: None)
  Receive Date: 20121108
  Receipt Date: 20121108
  Transmission Date: 20130627
  Serious: Yes (Other)
  Sender: FDA-Public Use
  Company Number: 2012MA012925

PATIENT
  Age: 42 Year
  Sex: Female

DRUGS (6)
  1. METOCLOPRAMIDE [Suspect]
     Indication: SICKNESS
     Route: 048
     Dates: start: 20120928, end: 20121002
  2. PROPRANOLOL [Concomitant]
  3. CIPROFLOXACIN [Concomitant]
  4. LANSOPRAZOLE [Concomitant]
  5. FLUOXETINE [Concomitant]
  6. KEFLEX [Concomitant]

REACTIONS (3)
  - Dystonia [None]
  - Facial spasm [None]
  - Muscle spasms [None]
